FAERS Safety Report 16921588 (Version 1)
Quarter: 2019Q4

REPORT INFORMATION
  Report Type: Spontaneous
  Country: IN (occurrence: IN)
  Receive Date: 20191015
  Receipt Date: 20191015
  Transmission Date: 20200122
  Serious: Yes (Other)
  Sender: FDA-Public Use
  Company Number: NVSC2019IN000988

PATIENT
  Age: 6 Year
  Sex: Female

DRUGS (1)
  1. MYCOPHENOLATE MOFETIL. [Suspect]
     Active Substance: MYCOPHENOLATE MOFETIL
     Indication: GLOMERULONEPHRITIS
     Dosage: UNK
     Route: 065

REACTIONS (4)
  - Proteinuria [Unknown]
  - Renal impairment [Unknown]
  - Product use in unapproved indication [Unknown]
  - Haematuria [Unknown]
